FAERS Safety Report 4425267-5 (Version None)
Quarter: 2004Q3

REPORT INFORMATION
  Report Type: 
  Country: None (occurrence: None)
  Receive Date: 20040813
  Receipt Date: 20040715
  Transmission Date: 20050211
  Serious: Yes (Hospitalization, Other)
  Sender: FDA-Public Use
  Company Number: GB-AMGEN-US084136

PATIENT
  Sex: Female

DRUGS (1)
  1. ENBREL [Suspect]
     Indication: RHEUMATOID ARTHRITIS
     Route: 058
     Dates: start: 20010122, end: 20040712

REACTIONS (10)
  - BACTERIA URINE IDENTIFIED [None]
  - BREAST CANCER FEMALE [None]
  - CANDIDIASIS [None]
  - ENTEROBACTER INFECTION [None]
  - ENTEROCOCCAL INFECTION [None]
  - IMPLANT SITE INFECTION [None]
  - KLEBSIELLA INFECTION [None]
  - OROPHARYNGEAL CANCER STAGE UNSPECIFIED [None]
  - STAPHYLOCOCCAL INFECTION [None]
  - URINARY TRACT INFECTION ENTEROCOCCAL [None]
